FAERS Safety Report 17465000 (Version 10)
Quarter: 2020Q4

REPORT INFORMATION
  Report Type: Report from Study
  Country: US (occurrence: US)
  Receive Date: 20200227
  Receipt Date: 20201104
  Transmission Date: 20210113
  Serious: No
  Sender: FDA-Public Use
  Company Number: NVSC2020US054705

PATIENT
  Sex: Male

DRUGS (1)
  1. COSENTYX [Suspect]
     Active Substance: SECUKINUMAB
     Indication: PSORIASIS
     Dosage: 300 MG, QMO
     Route: 058

REACTIONS (11)
  - Pain of skin [Unknown]
  - Skin lesion [Unknown]
  - Psoriasis [Unknown]
  - Product dose omission issue [Unknown]
  - Skin haemorrhage [Unknown]
  - Discomfort [Unknown]
  - Drug ineffective [Unknown]
  - Drug tolerance [Unknown]
  - Scratch [Unknown]
  - Pain [Unknown]
  - Pain in extremity [Unknown]
